FAERS Safety Report 21561876 (Version 1)
Quarter: 2022Q4

REPORT INFORMATION
  Report Type: Spontaneous
  Country: US (occurrence: None)
  Receive Date: 20221104
  Receipt Date: 20221104
  Transmission Date: 20230113
  Serious: Yes (Death)
  Sender: FDA-Public Use
  Company Number: None

PATIENT
  Age: 77 Year
  Sex: Male
  Weight: 60.69 kg

DRUGS (13)
  1. INLYTA [Suspect]
     Active Substance: AXITINIB
     Indication: Renal disorder
     Dosage: FREQUENCY : TWICE A DAY;?
     Route: 048
  2. ASPIRIN [Concomitant]
     Active Substance: ASPIRIN
  3. BACTROBAN NASAL OITNMENT [Concomitant]
  4. CIPRODEX [Concomitant]
     Active Substance: CIPROFLOXACIN HYDROCHLORIDE\DEXAMETHASONE
  5. DAILY MULTIPLE VITAMINS [Concomitant]
  6. ESOMEPRAZOLE MAGNESIUM [Concomitant]
     Active Substance: ESOMEPRAZOLE MAGNESIUM
  7. GABAPENTIN [Concomitant]
     Active Substance: GABAPENTIN
  8. JANUVIA [Concomitant]
  9. KEFLEX [Concomitant]
     Active Substance: CEPHALEXIN
  10. LISINOPRIL [Concomitant]
     Active Substance: LISINOPRIL
  11. MECLIZINE [Concomitant]
     Active Substance: MECLIZINE HYDROCHLORIDE
  12. METOPROLOL [Concomitant]
     Active Substance: METOPROLOL
  13. PRAVASTATIN [Concomitant]
     Active Substance: PRAVASTATIN

REACTIONS (1)
  - Death [None]
